FAERS Safety Report 6294505-9 (Version None)
Quarter: 2009Q4

REPORT INFORMATION
  Report Type: 
  Country: None (occurrence: None)
  Receive Date: 20090730
  Receipt Date: 20090721
  Transmission Date: 20100525
  Serious: Yes (Disabling, Other)
  Sender: FDA-Public Use
  Company Number: 333119

PATIENT
  Age: 49 Year
  Sex: Female

DRUGS (3)
  1. METHOTREXATE [Suspect]
     Indication: RHEUMATOID ARTHRITIS
     Dosage: 17.5 MG, 1 WEEK
  2. INFLIXIMAB [Suspect]
     Indication: RHEUMATOID ARTHRITIS
     Dosage: EVERY 6 WEEKS
  3. SULFASALAZINE [Concomitant]

REACTIONS (6)
  - GRANULOMA [None]
  - LICHENOID KERATOSIS [None]
  - MYCOBACTERIUM MARINUM INFECTION [None]
  - NECROSIS [None]
  - PANNICULITIS [None]
  - TENOSYNOVITIS [None]
